FAERS Safety Report 9663119 (Version 1)
Quarter: 2013Q4

REPORT INFORMATION
  Report Type: Spontaneous
  Country: BR (occurrence: BR)
  Receive Date: 20131101
  Receipt Date: 20131101
  Transmission Date: 20140711
  Serious: Yes (Other)
  Sender: FDA-Public Use
  Company Number: BR-AMGEN-BRASP2013076838

PATIENT
  Age: 66 Year
  Sex: Female
  Weight: 66 kg

DRUGS (4)
  1. ENBREL [Suspect]
     Indication: RHEUMATOID ARTHRITIS
     Dosage: 50 MG, ONCE WEEKLY
     Route: 058
     Dates: start: 201109
  2. DIAMICRON [Concomitant]
     Dosage: 1 TABLET (30 MG), 2X/DAY
     Route: 048
  3. GLIFAGE [Concomitant]
     Dosage: 1 TABLET (500 MG), 2X/DAY
     Route: 048
  4. OMEPRAZOLE [Concomitant]
     Dosage: 1 TABLET (20 MG), 1X/DAY
     Route: 048

REACTIONS (3)
  - Radius fracture [Unknown]
  - Fall [Unknown]
  - Pain in extremity [Not Recovered/Not Resolved]
